FAERS Safety Report 5096594-6 (Version None)
Quarter: 2006Q3

REPORT INFORMATION
  Report Type: 
  Country: None (occurrence: None)
  Receive Date: 20060830
  Receipt Date: 20060824
  Transmission Date: 20061208
  Serious: Yes (Hospitalization, Other)
  Sender: FDA-Public Use
  Company Number: FRWYE778424AUG06

PATIENT
  Age: 50 Year
  Sex: Female

DRUGS (1)
  1. ADVIL [Suspect]
     Dosage: ONE TABLET; ORAL
     Route: 048
     Dates: start: 20050915, end: 20050915

REACTIONS (2)
  - DRUG HYPERSENSITIVITY [None]
  - SKIN TEST POSITIVE [None]
